FAERS Safety Report 6048121-4 (Version None)
Quarter: 2009Q1

REPORT INFORMATION
  Report Type: 
  Country: None (occurrence: None)
  Receive Date: 20090123
  Receipt Date: 20090114
  Transmission Date: 20090719
  Serious: Yes (Life-Threatening, Hospitalization, Other)
  Sender: FDA-Public Use
  Company Number: CA-PFIZER INC-2009156397

PATIENT

DRUGS (16)
  1. BLINDED *PLACEBO [Suspect]
     Indication: ARTHRITIS
     Dosage: UNK
     Route: 048
     Dates: start: 20071219
  2. BLINDED CELECOXIB [Suspect]
     Indication: ARTHRITIS
     Dosage: UNK
     Route: 048
     Dates: start: 20071219
  3. IBUPROFEN TABLETS [Suspect]
     Indication: ARTHRITIS
     Dosage: UNK
     Route: 048
     Dates: start: 20071219
  4. NAPROXEN [Suspect]
     Indication: ARTHRITIS
     Dosage: UNK
     Route: 048
     Dates: start: 20071219
  5. NEXIUM [Concomitant]
     Dosage: 20 MG, 2X/DAY
     Route: 048
     Dates: start: 20071219, end: 20080819
  6. NEXIUM [Concomitant]
     Dosage: 40 MG, 2X/DAY
     Route: 048
     Dates: start: 20080820
  7. ASPIRIN [Concomitant]
     Route: 048
     Dates: start: 20020912
  8. AMLODIPINE [Concomitant]
     Route: 048
     Dates: start: 20070123
  9. HYDROCHLOROTHIAZIDE [Concomitant]
     Route: 048
     Dates: start: 20050719
  10. RAMIPRIL [Concomitant]
     Route: 048
     Dates: start: 20000711
  11. ATORVASTATIN [Concomitant]
     Route: 048
     Dates: start: 20040714
  12. ACETAMINOPHEN [Concomitant]
     Route: 048
     Dates: start: 20080130
  13. LANTUS [Concomitant]
     Route: 058
     Dates: start: 20080418
  14. HUMALOG [Concomitant]
     Route: 058
     Dates: start: 20080418
  15. FLEXERIL [Concomitant]
     Route: 048
     Dates: start: 20081210
  16. TRAMADOL HYDROCHLORIDE [Concomitant]
     Route: 048
     Dates: start: 20081217

REACTIONS (3)
  - ANAEMIA [None]
  - DIABETIC KETOACIDOSIS [None]
  - PNEUMONIA [None]
